FAERS Safety Report 5956923-5 (Version None)
Quarter: 2008Q4

REPORT INFORMATION
  Report Type: 
  Country: None (occurrence: None)
  Receive Date: 20081118
  Receipt Date: 20081110
  Transmission Date: 20090506
  Serious: Yes (Other)
  Sender: FDA-Public Use
  Company Number: JP-PFIZER INC-2008087954

PATIENT
  Sex: Male
  Weight: 49 kg

DRUGS (10)
  1. EPLERENONE [Suspect]
     Indication: HYPERTENSION
     Dosage: DAILY DOSE:50MG
     Route: 048
     Dates: start: 20080718, end: 20080918
  2. NEUQUINON [Concomitant]
     Route: 048
     Dates: start: 20060317
  3. LASIX [Concomitant]
     Route: 048
     Dates: start: 20060317
  4. ASPIRIN [Concomitant]
     Route: 048
     Dates: start: 20060317
  5. IMIDAPRIL HYDROCHLORIDE [Concomitant]
     Route: 048
     Dates: start: 20060317
  6. ROCORNAL [Concomitant]
     Route: 048
     Dates: start: 20060317
  7. ALLOPURINOL [Concomitant]
     Route: 048
     Dates: start: 20060317
  8. GASLON [Concomitant]
     Route: 048
     Dates: start: 20060317
  9. THEOPHYLLINE [Concomitant]
     Route: 048
     Dates: start: 20060317
  10. ALDACTONE [Concomitant]
     Route: 048
     Dates: start: 20060317

REACTIONS (3)
  - BLEPHARITIS [None]
  - CHEILITIS [None]
  - CONJUNCTIVITIS [None]
